FAERS Safety Report 16706774 (Version 2)
Quarter: 2019Q3

REPORT INFORMATION
  Report Type: Spontaneous
  Country: ES (occurrence: ES)
  Receive Date: 20190815
  Receipt Date: 20190926
  Transmission Date: 20191004
  Serious: Yes (Hospitalization, Other)
  Sender: FDA-Public Use
  Company Number: ES-TEVA-2019-ES-1091252

PATIENT
  Age: 58 Year
  Sex: Male

DRUGS (5)
  1. CEFOTAXIME [Concomitant]
     Active Substance: CEFOTAXIME SODIUM
     Dosage: ADMINISTERED FOR SEVERAL DAYS WITH GOOD TOLERANCE.
     Route: 065
  2. AMOXICILLIN W/CLAVULANIC ACID [Suspect]
     Active Substance: AMOXICILLIN\CLAVULANIC ACID
     Indication: PARONYCHIA
     Route: 048
  3. AMPICILLIN [Concomitant]
     Active Substance: AMPICILLIN
     Dosage: ADMINISTERED FOR SEVERAL DAYS WITH GOOD TOLERANCE.
     Route: 065
  4. AMOXICILLIN W/CLAVULANIC ACID [Suspect]
     Active Substance: AMOXICILLIN\CLAVULANIC ACID
     Indication: DENTAL OPERATION
  5. CEFTIBUTEN. [Concomitant]
     Active Substance: CEFTIBUTEN
     Dosage: ADMINISTERED FOR SEVERAL DAYS WITH GOOD TOLERANCE.
     Route: 065

REACTIONS (1)
  - Meningitis aseptic [Recovered/Resolved]
